FAERS Safety Report 26075652 (Version 1)
Quarter: 2025Q4

REPORT INFORMATION
  Report Type: Report from Study
  Country: CA (occurrence: CA)
  Receive Date: 20251121
  Receipt Date: 20251121
  Transmission Date: 20260118
  Serious: Yes (Hospitalization)
  Sender: OTSUKA
  Company Number: CA-MMM-Otsuka-4Q1G6MWO

PATIENT
  Sex: Male

DRUGS (2)
  1. ARIPIPRAZOLE [Suspect]
     Active Substance: ARIPIPRAZOLE
     Indication: Product used for unknown indication
     Dosage: 300 MG, Q 28 DAYS
  2. ZOLOFT [Concomitant]
     Active Substance: SERTRALINE HYDROCHLORIDE
     Indication: Product used for unknown indication
     Dosage: UNK
     Route: 065

REACTIONS (4)
  - Jaw fracture [Recovering/Resolving]
  - Tooth fracture [Recovering/Resolving]
  - Hypotension [Recovering/Resolving]
  - Fall [Recovering/Resolving]
